FAERS Safety Report 6979601-2 (Version None)
Quarter: 2010Q3

REPORT INFORMATION
  Report Type: 
  Country: None (occurrence: None)
  Receive Date: 20100913
  Receipt Date: 20100902
  Transmission Date: 20110219
  Serious: Yes (Hospitalization)
  Sender: FDA-Public Use
  Company Number: CA-MERCK-1009USA00330

PATIENT
  Age: 48 Year
  Sex: Male
  Weight: 105 kg

DRUGS (4)
  1. ZETIA [Suspect]
     Route: 048
  2. LIPITOR [Concomitant]
     Route: 048
  3. PLAVIX [Concomitant]
     Route: 065
  4. ASPIRINE [Concomitant]
     Route: 048

REACTIONS (1)
  - THROMBOSIS IN DEVICE [None]
